FAERS Safety Report 4354614-8 (Version None)
Quarter: 2004Q2

REPORT INFORMATION
  Report Type: 
  Country: None (occurrence: None)
  Receive Date: 20040503
  Receipt Date: 20040419
  Transmission Date: 20050107
  Serious: Yes (Hospitalization)
  Sender: FDA-Public Use
  Company Number: US-SHR-04-023588

PATIENT
  Age: 60 Year
  Sex: Female
  Weight: 92.1 kg

DRUGS (11)
  1. BETASERON [Suspect]
     Indication: MULTIPLE SCLEROSIS
     Dosage: 4 MIU, EVERY 2D, SUBCUTANEOUS
     Route: 058
     Dates: start: 20031031
  2. NEURONTIN [Concomitant]
  3. CELEXA [Concomitant]
  4. DIAZEPAM [Concomitant]
  5. RANITIDIN ^ALIUD PHARMA^ (RANITIDINE HYDROCHLORIDE) [Concomitant]
  6. ATACAND/SWE/(CANDESARTAN CILEXETIL) [Concomitant]
  7. OXYBUTYNIN [Concomitant]
  8. AMANTADINE HCL [Concomitant]
  9. VALTREX [Concomitant]
  10. PROMETHAZINE [Concomitant]
  11. AMOXICILLIN [Concomitant]

REACTIONS (9)
  - CONGENITAL ATRIAL SEPTAL DEFECT [None]
  - DYSARTHRIA [None]
  - DYSSTASIA [None]
  - HYPOAESTHESIA [None]
  - MULTIPLE SCLEROSIS [None]
  - MUSCLE CONTRACTURE [None]
  - NAUSEA [None]
  - PARAESTHESIA [None]
  - TRANSIENT ISCHAEMIC ATTACK [None]
